FAERS Safety Report 23424495 (Version 1)
Quarter: 2024Q1

REPORT INFORMATION
  Report Type: Spontaneous
  Country: CA (occurrence: CA)
  Receive Date: 20240120
  Receipt Date: 20240120
  Transmission Date: 20240409
  Serious: Yes (Hospitalization)
  Sender: FDA-Public Use
  Company Number: None

PATIENT
  Age: 76 Year
  Sex: Female
  Weight: 51 kg

DRUGS (17)
  1. CARBOPLATIN [Suspect]
     Active Substance: CARBOPLATIN
     Indication: Lung cancer metastatic
     Dosage: SOLUTION INTRAVENOUS, 1 EVERY 21 DAYS
     Route: 042
  2. PEMETREXED [Suspect]
     Active Substance: PEMETREXED
     Indication: Lung cancer metastatic
     Dosage: 1 EVERY 21 DAYS, POWDER FOR SOLUTION INTRAVENOUS
     Route: 042
  3. ATORVASTATIN CALCIUM [Concomitant]
     Active Substance: ATORVASTATIN CALCIUM
     Route: 065
  4. CALCIUM [Concomitant]
     Active Substance: CALCIUM
  5. DEXAMETHASONE [Concomitant]
     Active Substance: DEXAMETHASONE
     Route: 065
  6. ELIQUIS [Concomitant]
     Active Substance: APIXABAN
  7. FOLIC ACID [Concomitant]
     Active Substance: FOLIC ACID
  8. FUROSEMIDE [Concomitant]
     Active Substance: FUROSEMIDE
     Route: 065
  9. METOPROLOL [Concomitant]
     Active Substance: METOPROLOL
     Route: 065
  10. OXAZEPAM [Concomitant]
     Active Substance: OXAZEPAM
  11. PANTOPRAZOLE [Concomitant]
     Active Substance: PANTOPRAZOLE
  12. PEGFILGRASTIM [Concomitant]
     Active Substance: PEGFILGRASTIM
  13. RAMIPRIL [Concomitant]
     Active Substance: RAMIPRIL
  14. ALBUTEROL [Concomitant]
     Active Substance: ALBUTEROL
  15. SPIRONOLACTONE [Concomitant]
     Active Substance: SPIRONOLACTONE
  16. VITAMIN B12 [Concomitant]
     Active Substance: CYANOCOBALAMIN
  17. VITAMIN D [Concomitant]
     Active Substance: VITAMIN D NOS

REACTIONS (3)
  - Haemoglobin decreased [Recovering/Resolving]
  - Petechiae [Recovering/Resolving]
  - Thrombocytopenia [Recovering/Resolving]
